FAERS Safety Report 16921550 (Version 1)
Quarter: 2019Q4

REPORT INFORMATION
  Report Type: Report from Study
  Country: US (occurrence: US)
  Receive Date: 20191015
  Receipt Date: 20191015
  Transmission Date: 20200122
  Serious: Yes (Other)
  Sender: FDA-Public Use
  Company Number: NVSC2019US001819

PATIENT
  Sex: Male

DRUGS (1)
  1. ENTRESTO [Suspect]
     Active Substance: SACUBITRIL\VALSARTAN
     Indication: PRODUCT USED FOR UNKNOWN INDICATION
     Dosage: 100 MG (49 MG  SACUBITRIL/ 51MG VALSARTAN), BID
     Route: 065

REACTIONS (5)
  - Animal bite [Unknown]
  - Scratch [Unknown]
  - Infection [Unknown]
  - Cardiac disorder [Unknown]
  - Arterial occlusive disease [Unknown]
